FAERS Safety Report 18223512 (Version 1)
Quarter: 2020Q3

REPORT INFORMATION
  Report Type: Report from Study
  Country: CA (occurrence: CA)
  Receive Date: 20200902
  Receipt Date: 20200902
  Transmission Date: 20201103
  Serious: Yes (Other)
  Sender: FDA-Public Use
  Company Number: CA-JNJFOC-20200818063

PATIENT
  Age: 15 Year
  Sex: Female
  Weight: 35 kg

DRUGS (2)
  1. REMICADE [Suspect]
     Active Substance: INFLIXIMAB
     Indication: CROHN^S DISEASE
     Dosage: ON 21?AUG?2020, THE PATIENT RECEIVED 2ND DOSE OF 400MG INFLIXIMAB INFUSION.
     Route: 042
     Dates: start: 20200810
  2. REMICADE [Suspect]
     Active Substance: INFLIXIMAB
     Dosage: 10MG/KG FOR LOADING DOSE 2,6 THEN Q8 WEEKS.  UNIT DOSE ? 10 MG/KG.
     Route: 042

REACTIONS (2)
  - Crohn^s disease [Unknown]
  - Off label use [Unknown]

NARRATIVE: CASE EVENT DATE: 20200821
